FAERS Safety Report 24422004 (Version 1)
Quarter: 2024Q4

REPORT INFORMATION
  Report Type: Spontaneous
  Country: DE (occurrence: DE)
  Receive Date: 20241010
  Receipt Date: 20241010
  Transmission Date: 20250115
  Serious: Yes (Life-Threatening, Hospitalization, Other)
  Sender: DR REDDYS
  Company Number: None

PATIENT
  Age: 47 Year
  Sex: Female
  Weight: 70 kg

DRUGS (13)
  1. IBUPROFEN [Suspect]
     Active Substance: IBUPROFEN
     Indication: Product used for unknown indication
     Dosage: DAILY DOSE: 16000 MG MILLIGRAM(S) EVERY DAY
     Route: 048
     Dates: start: 20110730, end: 20110730
  2. AMBROXOL [Suspect]
     Active Substance: AMBROXOL
     Indication: Product used for unknown indication
     Dosage: DAILY DOSE: 240 MG MILLIGRAM(S) EVERY DAY
     Route: 048
     Dates: start: 20110730, end: 20110730
  3. CLINDAMYCIN [Suspect]
     Active Substance: CLINDAMYCIN
     Indication: Product used for unknown indication
     Dosage: DAILY DOSE: 4800 MG MILLIGRAM(S) EVERY DAY
     Route: 048
     Dates: start: 20110730, end: 20110730
  4. TETRAZEPAM [Suspect]
     Active Substance: TETRAZEPAM
     Indication: Product used for unknown indication
     Dosage: DAILY DOSE: 500 MG MILLIGRAM(S) EVERY DAY
     Route: 048
     Dates: start: 20110730, end: 20110730
  5. MELPERONE [Suspect]
     Active Substance: MELPERONE
     Indication: Product used for unknown indication
     Dosage: DAILY DOSE: 1000 MG MILLIGRAM(S) EVERY DAY
     Route: 048
     Dates: start: 20110730, end: 20110730
  6. CARBAMAZEPINE [Suspect]
     Active Substance: CARBAMAZEPINE
     Indication: Product used for unknown indication
     Dosage: DAILY DOSE: 6000 MG MILLIGRAM(S) EVERY DAY
     Route: 048
     Dates: start: 20110730, end: 20110730
  7. CLARITHROMYCIN [Suspect]
     Active Substance: CLARITHROMYCIN
     Indication: Product used for unknown indication
     Dosage: DAILY DOSE: 2500 MG MILLIGRAM(S) EVERY DAY
     Route: 048
     Dates: start: 20110730, end: 20110730
  8. CITALOPRAM [Suspect]
     Active Substance: CITALOPRAM
     Indication: Product used for unknown indication
     Dosage: DAILY DOSE: 1200 MG MILLIGRAM(S) EVERY DAY
     Route: 048
     Dates: start: 20110730, end: 20110730
  9. CAFFEINE\DIPHENHYDRAMINE\HEXETYLAMINE\PROPYPHENAZONE\SALICYLAMIDE [Suspect]
     Active Substance: CAFFEINE\DIPHENHYDRAMINE\HEXETYLAMINE\PROPYPHENAZONE\SALICYLAMIDE
     Indication: Product used for unknown indication
     Dosage: DAILY DOSE: 81 DF DOSAGE FORM EVERY DAY
     Route: 048
     Dates: start: 20110730, end: 20110730
  10. EBASTINE [Suspect]
     Active Substance: EBASTINE
     Indication: Product used for unknown indication
     Dosage: DAILY DOSE: 1280 MG MILLIGRAM(S) EVERY DAY
     Route: 048
     Dates: start: 20110730, end: 20110730
  11. ACETAMINOPHEN\ASCORBIC ACID\CAFFEINE\CHLORPHENIRAMINE MALEATE [Suspect]
     Active Substance: ACETAMINOPHEN\ASCORBIC ACID\CAFFEINE\CHLORPHENIRAMINE MALEATE
     Indication: Product used for unknown indication
     Route: 048
     Dates: start: 20110730, end: 20110730
  12. DIETARY SUPPLEMENT [Suspect]
     Active Substance: DIETARY SUPPLEMENT
     Indication: Product used for unknown indication
     Dosage: DAILY DOSE: 6400 DF DOSAGE FORM EVERY DAY
     Route: 048
     Dates: start: 20110730, end: 20110730
  13. ACETAMINOPHEN\BUTYLSCOPOLAMINE BROMIDE [Suspect]
     Active Substance: ACETAMINOPHEN\BUTYLSCOPOLAMINE BROMIDE
     Indication: Product used for unknown indication
     Dosage: DAILY DOSE: 100 DF DOSAGE FORM EVERY DAY
     Route: 048
     Dates: start: 20110730, end: 20110730

REACTIONS (11)
  - Hypoxia [Recovered/Resolved]
  - Aspiration [Recovered/Resolved]
  - Mydriasis [Recovered/Resolved]
  - Vomiting [Recovered/Resolved]
  - Tachycardia [Recovered/Resolved]
  - Poor quality sleep [Recovered/Resolved]
  - Hypervigilance [Recovered/Resolved]
  - Hypotension [Recovered/Resolved]
  - Suicide attempt [Recovered/Resolved]
  - Intentional overdose [Recovered/Resolved]
  - Suicidal behaviour [Recovered/Resolved]

NARRATIVE: CASE EVENT DATE: 20110730
